FAERS Safety Report 16164739 (Version 3)
Quarter: 2019Q2

REPORT INFORMATION
  Report Type: Spontaneous
  Country: US (occurrence: US)
  Receive Date: 20190405
  Receipt Date: 20190514
  Transmission Date: 20190711
  Serious: No
  Sender: FDA-Public Use
  Company Number: US-BAUSCH-BL-2019-009399

PATIENT
  Sex: Female

DRUGS (12)
  1. BEPREVE [Suspect]
     Active Substance: BEPOTASTINE BESILATE
     Indication: EYE ALLERGY
     Route: 047
     Dates: start: 2019, end: 20190322
  2. BEPREVE [Suspect]
     Active Substance: BEPOTASTINE BESILATE
     Indication: LACRIMATION INCREASED
     Route: 047
     Dates: start: 20190109, end: 2019
  3. HYDROXYZINE [Concomitant]
     Active Substance: HYDROXYZINE HYDROCHLORIDE
     Indication: PRODUCT USED FOR UNKNOWN INDICATION
  4. LOTEMAX [Concomitant]
     Active Substance: LOTEPREDNOL ETABONATE
     Indication: EYE ALLERGY
     Route: 047
     Dates: start: 201901, end: 201901
  5. LEVOCETIRIZINE [Concomitant]
     Active Substance: LEVOCETIRIZINE
     Indication: PRODUCT USED FOR UNKNOWN INDICATION
  6. LOTEMAX [Concomitant]
     Active Substance: LOTEPREDNOL ETABONATE
     Route: 047
     Dates: start: 2019
  7. OCUVITE ADULT 50 PLUS  MINIGELS [Concomitant]
     Indication: PRODUCT USED FOR UNKNOWN INDICATION
  8. PRAVASTATIN. [Concomitant]
     Active Substance: PRAVASTATIN
     Indication: PRODUCT USED FOR UNKNOWN INDICATION
  9. COQ10 [Concomitant]
     Active Substance: UBIDECARENONE
     Indication: PRODUCT USED FOR UNKNOWN INDICATION
  10. LOTEMAX [Concomitant]
     Active Substance: LOTEPREDNOL ETABONATE
     Dosage: PATIENT FINISHED THE LOTEMAX GEL
     Route: 047
     Dates: start: 2019, end: 2019
  11. VITAMIN D3 [Concomitant]
     Active Substance: CHOLECALCIFEROL
     Indication: PRODUCT USED FOR UNKNOWN INDICATION
  12. LOTEMAX [Concomitant]
     Active Substance: LOTEPREDNOL ETABONATE
     Indication: LACRIMATION INCREASED
     Route: 047
     Dates: start: 201901, end: 201901

REACTIONS (4)
  - Ocular discomfort [Unknown]
  - Eye discharge [Unknown]
  - Reaction to preservatives [Unknown]
  - Conjunctivitis viral [Unknown]

NARRATIVE: CASE EVENT DATE: 2019
